FAERS Safety Report 9588348 (Version 1)
Quarter: 2013Q4

REPORT INFORMATION
  Report Type: Spontaneous
  Country: US (occurrence: US)
  Receive Date: 20131003
  Receipt Date: 20131003
  Transmission Date: 20140711
  Serious: No
  Sender: FDA-Public Use
  Company Number: US-AMGEN-USASP2012063845

PATIENT
  Age: 52 Year
  Sex: Male
  Weight: 90.7 kg

DRUGS (7)
  1. ENBREL [Suspect]
     Indication: RHEUMATOID ARTHRITIS
     Dosage: 50 MG, QWK
     Route: 058
  2. METHOTREXATE [Concomitant]
     Dosage: 2.5 MG, UNK
     Route: 048
  3. PREDNISONE [Concomitant]
     Dosage: 10 MG, UNK
     Route: 048
  4. FOLIC ACID [Concomitant]
     Route: 048
  5. MOTRIN [Concomitant]
     Dosage: 400 MG, UNK
     Route: 048
  6. HYDROCODONE/APAP [Concomitant]
     Dosage: 10-300MG
     Route: 048
  7. HUMIRA [Concomitant]
     Dosage: UNK

REACTIONS (1)
  - Drug ineffective [Unknown]
